FAERS Safety Report 8990969 (Version 1)
Quarter: 2012Q4

REPORT INFORMATION
  Report Type: Spontaneous
  Country: US (occurrence: None)
  Receive Date: 20121227
  Receipt Date: 20121227
  Transmission Date: 20130627
  Serious: No
  Sender: FDA-Public Use
  Company Number: None

PATIENT
  Sex: Female

DRUGS (1)
  1. LEXAPRO [Suspect]
     Indication: BIPOLAR DISORDER II
     Dosage: 5 mg  OD  PO
before 11/19/12
     Route: 048

REACTIONS (1)
  - Irritable bowel syndrome [None]
